FAERS Safety Report 21836820 (Version 1)
Quarter: 2023Q1

REPORT INFORMATION
  Report Type: Spontaneous
  Country: US (occurrence: US)
  Receive Date: 20230109
  Receipt Date: 20230109
  Transmission Date: 20230417
  Serious: No
  Sender: FDA-Public Use
  Company Number: US-ABBVIE-4237320

PATIENT
  Age: 63 Year
  Sex: Male
  Weight: 80.739 kg

DRUGS (1)
  1. HUMIRA [Suspect]
     Active Substance: ADALIMUMAB
     Indication: Ankylosing spondylitis
     Route: 030
     Dates: end: 20221125

REACTIONS (2)
  - Arthritis [Unknown]
  - Muscle tightness [Unknown]

NARRATIVE: CASE EVENT DATE: 20221201
